FAERS Safety Report 8397220-0 (Version None)
Quarter: 2012Q2

REPORT INFORMATION
  Report Type: 
  Country: None (occurrence: None)
  Receive Date: 20120530
  Receipt Date: 20120522
  Transmission Date: 20120825
  Serious: Yes (Disabling, Other)
  Sender: FDA-Public Use
  Company Number: US-ALLERGAN-1207191US

PATIENT
  Age: 47 Year
  Sex: Female

DRUGS (3)
  1. BOTOX COSMETIC [Suspect]
     Indication: SKIN WRINKLING
     Dosage: 45 UNITS, SINGLE
     Route: 030
     Dates: start: 20120424, end: 20120424
  2. BOTOX COSMETIC [Suspect]
  3. BOTOX COSMETIC [Suspect]

REACTIONS (27)
  - PRURITUS [None]
  - NAUSEA [None]
  - DRY MOUTH [None]
  - COUGH [None]
  - POLYDIPSIA [None]
  - ERYTHEMA [None]
  - DRY EYE [None]
  - INFLUENZA [None]
  - PARAESTHESIA [None]
  - THROAT TIGHTNESS [None]
  - PAIN IN EXTREMITY [None]
  - MUSCULOSKELETAL STIFFNESS [None]
  - POLYURIA [None]
  - HYPOTONIC URINARY BLADDER [None]
  - MUSCULAR WEAKNESS [None]
  - DIZZINESS [None]
  - DYSPEPSIA [None]
  - DYSPNOEA [None]
  - DYSURIA [None]
  - URINARY INCONTINENCE [None]
  - CHEST DISCOMFORT [None]
  - ANXIETY [None]
  - LETHARGY [None]
  - GASTROINTESTINAL DISORDER [None]
  - MYALGIA [None]
  - VISION BLURRED [None]
  - EYELID PTOSIS [None]
